FAERS Safety Report 7293065-3 (Version None)
Quarter: 2011Q1

REPORT INFORMATION
  Report Type: 
  Country: None (occurrence: None)
  Receive Date: 20110215
  Receipt Date: 20110209
  Transmission Date: 20110831
  Serious: Yes (Hospitalization)
  Sender: FDA-Public Use
  Company Number: IT-ROCHE-749510

PATIENT
  Sex: Male
  Weight: 83 kg

DRUGS (6)
  1. BLINDED BEVACIZUMAB [Suspect]
     Indication: GLIOBLASTOMA
     Dosage: DECISION TO STOP MADE 1 DEC 2010, PATIENT EXCLUDED FROM THE STUDY.
     Route: 042
     Dates: start: 20100408, end: 20101118
  2. TEMODAL [Concomitant]
     Dates: start: 20101202, end: 20101216
  3. ENALAPRIL [Concomitant]
     Dates: start: 20100929, end: 20101116
  4. ENALAPRIL [Concomitant]
     Dates: start: 20110115, end: 20110119
  5. TEMOZOLOMIDE [Suspect]
     Indication: GLIOBLASTOMA
     Dosage: DECISION TO STOP MADE 1 DEC 2010, PATIENT EXCLUDED FORM THE PROTOCOL.FREQUENCY REPORTED:MONTHLY
     Route: 048
     Dates: start: 20100408, end: 20101108
  6. ENALAPRIL [Concomitant]
     Dosage: DOSE INCREASED.
     Dates: start: 20101217, end: 20110114

REACTIONS (1)
  - CONVULSION [None]
